FAERS Safety Report 22133672 (Version 1)
Quarter: 2023Q1

REPORT INFORMATION
  Report Type: Spontaneous
  Country: CN (occurrence: CN)
  Receive Date: 20230324
  Receipt Date: 20230324
  Transmission Date: 20230418
  Serious: Yes (Hospitalization)
  Sender: FDA-Public Use
  Company Number: None

PATIENT
  Age: 89 Year
  Sex: Female

DRUGS (6)
  1. DEXAMETHASONE [Suspect]
     Active Substance: DEXAMETHASONE
     Indication: Pemphigoid
     Route: 048
  2. DEXAMETHASONE [Suspect]
     Active Substance: DEXAMETHASONE
     Dosage: REDUCED
  3. DEXAMETHASONE [Suspect]
     Active Substance: DEXAMETHASONE
     Dosage: REDUCED
  4. HALOMETASONE [Concomitant]
     Active Substance: HALOMETASONE
     Indication: Pemphigoid
  5. MOMETASONE [Concomitant]
     Active Substance: MOMETASONE
     Indication: Pemphigoid
  6. SULFUR [Concomitant]
     Active Substance: SULFUR
     Indication: Product used for unknown indication

REACTIONS (1)
  - Acarodermatitis [Recovering/Resolving]
